FAERS Safety Report 11342222 (Version 1)
Quarter: 2015Q3

REPORT INFORMATION
  Report Type: Report from Study
  Country: US (occurrence: US)
  Receive Date: 20150805
  Receipt Date: 20150805
  Transmission Date: 20151125
  Serious: Yes (Other)
  Sender: FDA-Public Use
  Company Number: US-MALLINCKRODT-T201503488

PATIENT
  Age: 39 Year
  Sex: Female

DRUGS (1)
  1. REPOSITORY CORTICOTROPIN INJECTION [Suspect]
     Active Substance: CORTICOTROPIN
     Indication: SARCOIDOSIS
     Dosage: 80 UNITS, TWICE WEEKLY
     Route: 065
     Dates: start: 20150701, end: 20150715

REACTIONS (3)
  - Thrombosis [Unknown]
  - Hypoaesthesia [Unknown]
  - Miliaria [Unknown]

NARRATIVE: CASE EVENT DATE: 201507
